FAERS Safety Report 9338120 (Version 2)
Quarter: 2013Q3

REPORT INFORMATION
  Report Type: Spontaneous
  Country: US (occurrence: US)
  Receive Date: 20130610
  Receipt Date: 20130708
  Transmission Date: 20140515
  Serious: Yes (Other)
  Sender: FDA-Public Use
  Company Number: US-AMGEN-USASP2013039746

PATIENT
  Age: 70 Year
  Sex: Female
  Weight: 108.7 kg

DRUGS (14)
  1. NPLATE [Suspect]
     Indication: IMMUNE THROMBOCYTOPENIC PURPURA
     Dosage: 1 MUG/KG, QWK
     Route: 058
     Dates: start: 201103
  2. NPLATE [Suspect]
  3. NPLATE [Suspect]
  4. ACETAMINOPHEN [Concomitant]
  5. AMLODIPINE [Concomitant]
  6. CLONAZEPAM [Concomitant]
  7. DOXAZOSIN [Concomitant]
  8. EZETIMIBE [Concomitant]
  9. TOVIAZ [Concomitant]
  10. FLUCONAZOLE [Concomitant]
  11. HYDROXYZINE [Concomitant]
  12. LISINOPRIL [Concomitant]
  13. LOVASTATIN [Concomitant]
  14. PANTOPRAZOLE [Concomitant]

REACTIONS (2)
  - Therapeutic response decreased [Unknown]
  - Platelet count abnormal [Unknown]
